FAERS Safety Report 4765321-1 (Version None)
Quarter: 2005Q3

REPORT INFORMATION
  Report Type: 
  Country: None (occurrence: None)
  Receive Date: 20050909
  Receipt Date: 20050318
  Transmission Date: 20060218
  Serious: Yes (Hospitalization)
  Sender: FDA-Public Use
  Company Number: US-MERCK-0503USA03387

PATIENT
  Age: 64 Year
  Sex: Female
  Weight: 68 kg

DRUGS (6)
  1. VIOXX [Suspect]
     Indication: ARTHRALGIA
     Route: 048
     Dates: start: 20020602, end: 20030101
  2. VIOXX [Suspect]
     Route: 048
     Dates: start: 20020228, end: 20020602
  3. VIOXX [Suspect]
     Route: 048
     Dates: start: 20020501, end: 20020601
  4. VIOXX [Suspect]
     Indication: BACK PAIN
     Route: 048
     Dates: start: 20020602, end: 20030101
  5. VIOXX [Suspect]
     Route: 048
     Dates: start: 20020228, end: 20020602
  6. VIOXX [Suspect]
     Route: 048
     Dates: start: 20020501, end: 20020601

REACTIONS (38)
  - ABDOMINAL DISTENSION [None]
  - ACTIVITIES OF DAILY LIVING IMPAIRED [None]
  - ANXIETY [None]
  - AREFLEXIA [None]
  - ATRIAL FIBRILLATION [None]
  - BIPOLAR DISORDER [None]
  - BLOOD CALCIUM INCREASED [None]
  - BLOOD CHLORIDE DECREASED [None]
  - BLOOD UREA INCREASED [None]
  - CARDIAC MURMUR [None]
  - CEREBROVASCULAR ACCIDENT [None]
  - CHEST PAIN [None]
  - DEATH OF CHILD [None]
  - DEHYDRATION [None]
  - DEMENTIA [None]
  - DEPRESSION [None]
  - DIARRHOEA [None]
  - DIASTOLIC DYSFUNCTION [None]
  - DRUG DEPENDENCE [None]
  - ELECTROCARDIOGRAM CHANGE [None]
  - GASTROINTESTINAL DISORDER [None]
  - HYPERLIPIDAEMIA [None]
  - HYPERTENSION [None]
  - HYPOKALAEMIA [None]
  - ILEUS [None]
  - INTERNATIONAL NORMALISED RATIO DECREASED [None]
  - INTERNATIONAL NORMALISED RATIO INCREASED [None]
  - INTESTINAL FUNCTIONAL DISORDER [None]
  - LOBAR PNEUMONIA [None]
  - MITRAL VALVE INCOMPETENCE [None]
  - NAUSEA [None]
  - POST-TRAUMATIC STRESS DISORDER [None]
  - PSYCHOTIC DISORDER [None]
  - TREATMENT NONCOMPLIANCE [None]
  - TRICUSPID VALVE INCOMPETENCE [None]
  - VENTRICULAR DYSFUNCTION [None]
  - VENTRICULAR HYPERTROPHY [None]
  - VOMITING [None]
